FAERS Safety Report 13523519 (Version 2)
Quarter: 2017Q3

REPORT INFORMATION
  Report Type: Spontaneous
  Country: US (occurrence: US)
  Receive Date: 20170508
  Receipt Date: 20170810
  Transmission Date: 20171127
  Serious: No
  Sender: FDA-Public Use
  Company Number: US-VIFOR (INTERNATIONAL) INC.-VIT-2017-04432

PATIENT
  Age: 63 Year
  Sex: Female
  Weight: 78.54 kg

DRUGS (17)
  1. SINGULAIR [Concomitant]
     Active Substance: MONTELUKAST SODIUM
  2. GLYCERYL TRINITRATE [Concomitant]
     Active Substance: NITROGLYCERIN
  3. ERGOCALCIFEROL. [Concomitant]
     Active Substance: ERGOCALCIFEROL
  4. VELTASSA [Suspect]
     Active Substance: PATIROMER
     Indication: BLOOD POTASSIUM INCREASED
     Route: 048
     Dates: start: 20170413
  5. GLYBURIDE. [Concomitant]
     Active Substance: GLYBURIDE
  6. METOPROLOL. [Concomitant]
     Active Substance: METOPROLOL
  7. NEXIUM [Concomitant]
     Active Substance: ESOMEPRAZOLE MAGNESIUM
  8. MORPHINE [Concomitant]
     Active Substance: MORPHINE
  9. PROAIR HFA [Concomitant]
     Active Substance: ALBUTEROL SULFATE
  10. CADUET [Concomitant]
     Active Substance: AMLODIPINE BESYLATE\ATORVASTATIN CALCIUM
  11. ACETYLSALICYLIC ACID [Concomitant]
     Active Substance: ASPIRIN
  12. IRON [Concomitant]
     Active Substance: IRON
  13. CITALOPRAM [Concomitant]
     Active Substance: CITALOPRAM HYDROBROMIDE
  14. LISINOPRIL. [Concomitant]
     Active Substance: LISINOPRIL
  15. ZYLOPRIM [Concomitant]
     Active Substance: ALLOPURINOL
  16. LASIX [Concomitant]
     Active Substance: FUROSEMIDE
  17. NICOTINIC ACID [Concomitant]
     Active Substance: NIACIN

REACTIONS (6)
  - Myalgia [Recovering/Resolving]
  - Musculoskeletal chest pain [Recovering/Resolving]
  - Limb discomfort [Recovering/Resolving]
  - Pain in extremity [Recovering/Resolving]
  - Muscle spasms [Recovering/Resolving]
  - Constipation [Recovering/Resolving]

NARRATIVE: CASE EVENT DATE: 201704
